FAERS Safety Report 16306884 (Version 3)
Quarter: 2020Q2

REPORT INFORMATION
  Report Type: Report from Study
  Country: US (occurrence: US)
  Receive Date: 20190513
  Receipt Date: 20200609
  Transmission Date: 20200713
  Serious: Yes (Hospitalization)
  Sender: FDA-Public Use
  Company Number: US-ACTELION-A-NJ2018-169790

PATIENT
  Age: 62 Year
  Sex: Female

DRUGS (9)
  1. ASPIRIN. [Concomitant]
     Active Substance: ASPIRIN
  2. TRACLEER [Suspect]
     Active Substance: BOSENTAN
     Indication: PULMONARY ARTERIAL HYPERTENSION
     Dosage: 125 MG, BID
     Route: 048
     Dates: start: 2015
  3. SKELAXIN [Concomitant]
     Active Substance: METAXALONE
     Dosage: 800 MG, UNK
     Dates: start: 20180320
  4. SAVELLA [Concomitant]
     Active Substance: MILNACIPRAN HYDROCHLORIDE
     Dosage: 100 MG, UNK
     Dates: start: 20180320
  5. VITAMIN D [Concomitant]
     Active Substance: VITAMIN D NOS
     Dosage: 5000 U, UNK
     Dates: start: 20180320
  6. AMLODIPINE [Concomitant]
     Active Substance: AMLODIPINE BESYLATE
     Dosage: 5 MG, UNK
     Dates: start: 20180320
  7. METOPROLOL. [Concomitant]
     Active Substance: METOPROLOL
     Dosage: 50 MG, UNK
     Dates: start: 20180320
  8. SILDENAFIL. [Concomitant]
     Active Substance: SILDENAFIL
     Dosage: UNK
     Dates: start: 20180320
  9. TRAMADOL. [Concomitant]
     Active Substance: TRAMADOL
     Dosage: 50 MG, UNK
     Dates: start: 20180320

REACTIONS (7)
  - Unevaluable event [Unknown]
  - Influenza [Recovered/Resolved]
  - Memory impairment [Unknown]
  - Insomnia [Not Recovered/Not Resolved]
  - Bedridden [Not Recovered/Not Resolved]
  - Hypertension [Not Recovered/Not Resolved]
  - Product dose omission [Unknown]

NARRATIVE: CASE EVENT DATE: 20190329
